FAERS Safety Report 8296228-3 (Version None)
Quarter: 2012Q2

REPORT INFORMATION
  Report Type: 
  Country: None (occurrence: None)
  Receive Date: 20120418
  Receipt Date: 20120411
  Transmission Date: 20120825
  Serious: Yes (Other)
  Sender: FDA-Public Use
  Company Number: PHHY2012BR031525

PATIENT
  Sex: Female

DRUGS (1)
  1. DIOVAN HCT [Suspect]
     Indication: HYPERTENSION
     Dosage: 1 DF (160/12.5MG) DAILY
     Route: 048

REACTIONS (5)
  - BLOOD PRESSURE INCREASED [None]
  - HEART RATE DECREASED [None]
  - VISION BLURRED [None]
  - DIABETES MELLITUS [None]
  - HYPOTHYROIDISM [None]
